FAERS Safety Report 8477963-0 (Version None)
Quarter: 2012Q2

REPORT INFORMATION
  Report Type: 
  Country: None (occurrence: None)
  Receive Date: 20120629
  Receipt Date: 20120620
  Transmission Date: 20120825
  Serious: Yes (Hospitalization)
  Sender: FDA-Public Use
  Company Number: US-BAYER-2012-009497

PATIENT
  Age: 44 Year
  Sex: Female
  Weight: 75 kg

DRUGS (5)
  1. AZITHROMYCIN [Concomitant]
     Indication: ACUTE SINUSITIS
     Dosage: 250 MG, DAILY
  2. MULTI-VITAMIN [Concomitant]
     Dosage: DAILY
  3. YAZ [Suspect]
     Indication: MENORRHAGIA
     Dosage: UNK
     Dates: start: 20070901, end: 20100610
  4. CITRACAL [Concomitant]
  5. AXERT [Concomitant]
     Indication: MIGRAINE
     Dosage: 12.5 MG, ONCE AS NEEDED
     Dates: start: 20020101, end: 20100604

REACTIONS (9)
  - GENERAL PHYSICAL HEALTH DETERIORATION [None]
  - INJURY [None]
  - PAIN [None]
  - EMOTIONAL DISTRESS [None]
  - ANXIETY [None]
  - PULMONARY EMBOLISM [None]
  - DEEP VEIN THROMBOSIS [None]
  - CARDIAC ANEURYSM [None]
  - ATELECTASIS [None]
